FAERS Safety Report 7824453-1 (Version None)
Quarter: 2011Q4

REPORT INFORMATION
  Report Type: 
  Country: None (occurrence: None)
  Receive Date: 20111018
  Receipt Date: 20111018
  Transmission Date: 20120403
  Serious: Yes (Death)
  Sender: FDA-Public Use
  Company Number: None

PATIENT
  Age: 59 Year
  Sex: Male
  Weight: 127.4608 kg

DRUGS (2)
  1. MULTAQ [Suspect]
     Indication: CARDIOMYOPATHY
     Dosage: MULTAQ 400MG TWICE DAILY PO
     Route: 048
     Dates: start: 20110628, end: 20110804
  2. MULTAQ [Suspect]
     Indication: ATRIAL FIBRILLATION
     Dosage: MULTAQ 400MG TWICE DAILY PO
     Route: 048
     Dates: start: 20110628, end: 20110804

REACTIONS (8)
  - ERYTHEMA [None]
  - ABDOMINAL PAIN UPPER [None]
  - VOMITING [None]
  - INFLUENZA LIKE ILLNESS [None]
  - FATIGUE [None]
  - NAUSEA [None]
  - HEART RATE IRREGULAR [None]
  - DIZZINESS [None]
